FAERS Safety Report 5900128-0 (Version None)
Quarter: 2008Q3

REPORT INFORMATION
  Report Type: 
  Country: None (occurrence: None)
  Receive Date: 20080926
  Receipt Date: 20080924
  Transmission Date: 20090109
  Serious: Yes (Other)
  Sender: FDA-Public Use
  Company Number: US-RB-004342-08

PATIENT
  Age: 33 Year
  Sex: Female

DRUGS (5)
  1. SUBUTEX [Suspect]
     Route: 060
     Dates: start: 20080709
  2. SUBOXONE [Suspect]
     Route: 060
     Dates: start: 20070801, end: 20080708
  3. SUBOXONE [Suspect]
     Route: 060
     Dates: start: 20070709, end: 20070801
  4. CELEXA [Concomitant]
     Indication: DEPRESSION
     Route: 048
     Dates: start: 20071001
  5. ALCOHOL [Suspect]
     Indication: DRUG USE FOR UNKNOWN INDICATION
     Dosage: LARGE AMOUNT CONSUMED (SPECIFICS UNKNOWN)
     Route: 048
     Dates: start: 20080704

REACTIONS (4)
  - CONVULSION [None]
  - DRUG EXPOSURE DURING PREGNANCY [None]
  - HEAD INJURY [None]
  - LOSS OF CONSCIOUSNESS [None]
